FAERS Safety Report 7742825 (Version 13)
Quarter: 2013Q2

REPORT INFORMATION
  Report Type: Report from Study
  Country: RU (occurrence: RU)
  Receive Date: 20101229
  Receipt Date: 20130515
  Transmission Date: 20140414
  Serious: Yes (Hospitalization)
  Sender: FDA-Public Use
  Company Number: RU-GENZYME-CAMP-1001225

PATIENT
  Age: 25 Year
  Sex: Female
  Weight: 66.3 kg

DRUGS (13)
  1. ALEMTUZUMAB [Suspect]
     Indication: MULTIPLE SCLEROSIS
     Dosage: 12 MG, QD
     Route: 042
     Dates: start: 20100614, end: 20100616
  2. ALEMTUZUMAB [Suspect]
     Dosage: 12 MG, QD
     Route: 042
     Dates: start: 20080519, end: 20080523
  3. ALEMTUZUMAB [Suspect]
     Dosage: 12 MG, QD
     Route: 042
     Dates: start: 20090518, end: 20090520
  4. NORFLOXACIN [Concomitant]
     Indication: CYSTITIS
     Dosage: 400 MG, BID
     Route: 048
     Dates: start: 20100723, end: 20100727
  5. NORFLOXACIN [Concomitant]
     Indication: CYSTITIS NONINFECTIVE
     Dosage: 400 MG, BID
     Route: 048
     Dates: start: 20101102, end: 20101111
  6. TERGYNAN [Concomitant]
     Indication: DISBACTERIOSIS
     Dosage: 1 VAGINAL TAB, QD
     Route: 067
     Dates: start: 20100723, end: 20100801
  7. AZITHROMYCIN [Concomitant]
     Indication: DISBACTERIOSIS
     Dosage: 500 MG, QD
     Route: 048
     Dates: start: 20100728, end: 20100730
  8. DOXYCYCLINE [Concomitant]
     Indication: DISBACTERIOSIS
     Dosage: 100 MG, BID
     Route: 048
     Dates: start: 20100731, end: 20100804
  9. LINEX [Concomitant]
     Indication: DISBACTERIOSIS
     Dosage: 2 CAPSULES, TID
     Route: 048
     Dates: start: 20100728, end: 20100809
  10. POLYGYNAX [Concomitant]
     Indication: DISBACTERIOSIS
     Dosage: 1 VAGINAL CAPSULE, QD
     Route: 067
     Dates: start: 20100920, end: 20100926
  11. CYSTEX [Concomitant]
     Indication: DISBACTERIOSIS
     Dosage: 2 TAB, BID
     Route: 048
     Dates: start: 20101201, end: 20101222
  12. OMEPRAZOLE [Concomitant]
     Indication: PROPHYLAXIS
     Dosage: 20 MG, BID
     Route: 048
     Dates: start: 20110203, end: 20110513
  13. PROGESTERONE [Concomitant]
     Indication: DYSMENORRHOEA
     Dosage: 200 MG, QD
     Route: 048
     Dates: start: 20120423, end: 20120614

REACTIONS (1)
  - Glomerulonephritis membranous [Not Recovered/Not Resolved]
